FAERS Safety Report 4285812-X (Version None)
Quarter: 2004Q1

REPORT INFORMATION
  Report Type: 
  Country: None (occurrence: None)
  Receive Date: 20040203
  Receipt Date: 20040122
  Transmission Date: 20041129
  Serious: Yes (Disabling)
  Sender: FDA-Public Use
  Company Number: 970203-107050730

PATIENT
  Age: 24 Year
  Sex: Male

DRUGS (3)
  1. HALDOL [Suspect]
     Indication: ILL-DEFINED DISORDER
  2. CHLORPROMAZINE [Concomitant]
  3. LITHIUM CARBONATE [Concomitant]

REACTIONS (13)
  - ABASIA [None]
  - ASTHENIA [None]
  - CEREBROVASCULAR ACCIDENT [None]
  - DYSARTHRIA [None]
  - EXTREMITY CONTRACTURE [None]
  - FACIAL PALSY [None]
  - GAIT DISTURBANCE [None]
  - MEMORY IMPAIRMENT [None]
  - MUSCLE TWITCHING [None]
  - MUSCULOSKELETAL STIFFNESS [None]
  - OCULOGYRATION [None]
  - POSTURE ABNORMAL [None]
  - SPEECH DISORDER [None]
